FAERS Safety Report 6096055-1 (Version None)
Quarter: 2009Q1

REPORT INFORMATION
  Report Type: 
  Country: None (occurrence: None)
  Receive Date: 20090227
  Receipt Date: 20080821
  Transmission Date: 20090719
  Serious: No
  Sender: FDA-Public Use
  Company Number: A0743727A

PATIENT
  Age: 18 Year
  Sex: Female

DRUGS (3)
  1. LAMICTAL [Suspect]
     Indication: BIPOLAR DISORDER
     Dosage: 150MG AT NIGHT
     Route: 048
     Dates: start: 20071201
  2. LEXAPRO [Concomitant]
  3. VYVANSE [Concomitant]

REACTIONS (2)
  - DRUG ADMINISTRATION ERROR [None]
  - NAUSEA [None]
